FAERS Safety Report 23693193 (Version 3)
Quarter: 2024Q3

REPORT INFORMATION
  Report Type: Spontaneous
  Country: US (occurrence: US)
  Receive Date: 20240401
  Receipt Date: 20240725
  Transmission Date: 20241017
  Serious: No
  Sender: SANOFI AVENTIS
  Company Number: US-SA-SAC20240325000266

PATIENT
  Age: 67 Year
  Sex: Male

DRUGS (4)
  1. DUPIXENT [Suspect]
     Active Substance: DUPILUMAB
     Indication: Dermatitis atopic
     Dosage: 300 MG, QOW
     Route: 058
     Dates: start: 2022
  2. DUPIXENT [Suspect]
     Active Substance: DUPILUMAB
     Dosage: 300 MG, QOW
     Route: 058
     Dates: start: 20240320
  3. FAMOTIDINE [Concomitant]
     Active Substance: FAMOTIDINE
     Dosage: UNK
  4. IBUPROFEN [Concomitant]
     Active Substance: IBUPROFEN
     Dosage: UNK

REACTIONS (9)
  - Dry skin [Unknown]
  - Skin fissures [Unknown]
  - Formication [Unknown]
  - Depressed mood [Unknown]
  - Dyspnoea [Recovered/Resolved]
  - Skin exfoliation [Unknown]
  - Vision blurred [Unknown]
  - Pruritus [Unknown]
  - Eye pruritus [Unknown]

NARRATIVE: CASE EVENT DATE: 20240101
